FAERS Safety Report 6662476-9 (Version None)
Quarter: 2010Q1

REPORT INFORMATION
  Report Type: 
  Country: None (occurrence: None)
  Receive Date: 20100331
  Receipt Date: 20100326
  Transmission Date: 20100710
  Serious: Yes (Hospitalization, Other)
  Sender: FDA-Public Use
  Company Number: US-MERCK-0901USA02263

PATIENT
  Age: 67 Year
  Sex: Female

DRUGS (5)
  1. FOSAMAX [Suspect]
     Indication: OSTEOPOROSIS
     Route: 048
     Dates: start: 19950101, end: 20031201
  2. FOSAMAX [Suspect]
     Route: 048
     Dates: start: 20030201, end: 20031101
  3. FOSAMAX [Suspect]
     Route: 048
     Dates: start: 19960201
  4. ZOMETA [Suspect]
     Indication: BONE DENSITY DECREASED
     Route: 042
     Dates: start: 20040322, end: 20051102
  5. ZOMETA [Suspect]
     Indication: OSTEOPOROSIS
     Route: 042
     Dates: start: 20040322, end: 20051102

REACTIONS (60)
  - ABDOMINAL PAIN UPPER [None]
  - ANXIETY [None]
  - ARTHROPATHY [None]
  - BALANCE DISORDER [None]
  - BLOOD PRESSURE INCREASED [None]
  - BONE DENSITY DECREASED [None]
  - BONE DISORDER [None]
  - BREAST CANCER [None]
  - CYSTITIS INTERSTITIAL [None]
  - DEAFNESS NEUROSENSORY [None]
  - DENTAL CARIES [None]
  - DENTAL PLAQUE [None]
  - DIARRHOEA [None]
  - DIPLOPIA [None]
  - DIZZINESS [None]
  - EAR DISORDER [None]
  - ESSENTIAL TREMOR [None]
  - EYE DISORDER [None]
  - FACIAL PALSY [None]
  - FALL [None]
  - FATIGUE [None]
  - FEMUR FRACTURE [None]
  - FOOT FRACTURE [None]
  - FRACTURED SACRUM [None]
  - GASTROOESOPHAGEAL REFLUX DISEASE [None]
  - GINGIVAL BLEEDING [None]
  - GINGIVITIS [None]
  - HEPATIC CYST [None]
  - HYPERCHOLESTEROLAEMIA [None]
  - HYPERTONIC BLADDER [None]
  - IMPAIRED HEALING [None]
  - INFLAMMATION [None]
  - KYPHOSIS [None]
  - MASTICATION DISORDER [None]
  - MASTOIDITIS [None]
  - MIXED DEAFNESS [None]
  - MYALGIA [None]
  - ORAL PAIN [None]
  - OSTEOARTHRITIS [None]
  - OSTEOLYSIS [None]
  - OSTEOMYELITIS [None]
  - OSTEONECROSIS [None]
  - OSTEORADIONECROSIS [None]
  - PARAESTHESIA [None]
  - PERIOSTITIS [None]
  - PERIPHERAL VASCULAR DISORDER [None]
  - POSTMENOPAUSAL HAEMORRHAGE [None]
  - SCOLIOSIS [None]
  - SKIN LACERATION [None]
  - SPEECH DISORDER [None]
  - SPINAL DISORDER [None]
  - STOMATITIS [None]
  - SUBGALEAL HAEMATOMA [None]
  - TOOTH DISORDER [None]
  - TYMPANIC MEMBRANE PERFORATION [None]
  - URINARY TRACT INFECTION [None]
  - VERTEBRAL WEDGING [None]
  - VIRAL INFECTION [None]
  - VISION BLURRED [None]
  - WOUND [None]
